FAERS Safety Report 11467841 (Version 1)
Quarter: 2015Q3

REPORT INFORMATION
  Report Type: Spontaneous
  Country: US (occurrence: US)
  Receive Date: 20150908
  Receipt Date: 20150908
  Transmission Date: 20151125
  Serious: No
  Sender: FDA-Public Use
  Company Number: US-BAYER-2015-416690

PATIENT
  Age: 75 Year
  Sex: Female
  Weight: 58.96 kg

DRUGS (10)
  1. MIRALAX [Suspect]
     Active Substance: POLYETHYLENE GLYCOL 3350
     Indication: CONSTIPATION
     Dosage: 1 DF, QOD
     Route: 048
     Dates: start: 2010
  2. CENTRUM [Concomitant]
     Active Substance: VITAMINS
  3. BAYER ASPIRIN REGIMEN REGULAR 325 MG STRENGTH [Concomitant]
     Active Substance: ASPIRIN
     Indication: ISCHAEMIC HEART DISEASE PROPHYLAXIS
     Dosage: UNK
  4. VITACAL [Concomitant]
  5. FISH OIL [Concomitant]
     Active Substance: FISH OIL
  6. PRENATAL VITAMINS [Concomitant]
     Active Substance: VITAMINS
     Dosage: UNK
  7. GABAPENTIN. [Concomitant]
     Active Substance: GABAPENTIN
     Dosage: UNK
  8. ALPRAZOLAM. [Concomitant]
     Active Substance: ALPRAZOLAM
     Dosage: UNK
  9. OXYCODONE [Concomitant]
     Active Substance: OXYCODONE
  10. NIACIN. [Concomitant]
     Active Substance: NIACIN

REACTIONS (2)
  - Off label use [None]
  - Product use issue [None]
